FAERS Safety Report 5921628-3 (Version None)
Quarter: 2008Q4

REPORT INFORMATION
  Report Type: 
  Country: None (occurrence: None)
  Receive Date: 20081016
  Receipt Date: 20081016
  Transmission Date: 20090506
  Serious: Yes (Other)
  Sender: FDA-Public Use
  Company Number: None

PATIENT
  Sex: Female
  Weight: 50.8029 kg

DRUGS (1)
  1. MEDROXYPROGESTERONE [Suspect]
     Indication: AMENORRHOEA
     Dosage: 10 MG ONCE A DAY
     Dates: start: 20080803, end: 20080808

REACTIONS (7)
  - ABDOMINAL DISTENSION [None]
  - ALOPECIA [None]
  - BREAST TENDERNESS [None]
  - DIZZINESS [None]
  - HEADACHE [None]
  - NAUSEA [None]
  - PARAESTHESIA [None]
